FAERS Safety Report 7240775-X (Version None)
Quarter: 2011Q1

REPORT INFORMATION
  Report Type: 
  Country: None (occurrence: None)
  Receive Date: 20110118
  Receipt Date: 20110104
  Transmission Date: 20110831
  Serious: Yes (Other)
  Sender: FDA-Public Use
  Company Number: 2011SP000308

PATIENT
  Age: 24 Year
  Sex: Female
  Weight: 57.1532 kg

DRUGS (2)
  1. IMPLANON [Suspect]
     Indication: CONTRACEPTION
     Dosage: SBDE
     Dates: start: 20101116
  2. AMOXIL [Suspect]
     Indication: EAR INFECTION

REACTIONS (5)
  - LIP SWELLING [None]
  - OEDEMA PERIPHERAL [None]
  - SWELLING FACE [None]
  - EAR INFECTION [None]
  - JOINT SWELLING [None]
